FAERS Safety Report 7573809-3 (Version None)
Quarter: 2011Q2

REPORT INFORMATION
  Report Type: 
  Country: None (occurrence: None)
  Receive Date: 20110621
  Receipt Date: 20110602
  Transmission Date: 20111010
  Serious: Yes (Hospitalization)
  Sender: FDA-Public Use
  Company Number: 20110438

PATIENT
  Age: 2 Year
  Sex: Male

DRUGS (1)
  1. CEFTRIAXONE SODIUM [Suspect]
     Indication: ACUTE CHEST SYNDROME

REACTIONS (5)
  - ACIDOSIS [None]
  - OXYGEN SATURATION DECREASED [None]
  - HAEMOLYTIC ANAEMIA [None]
  - BLOOD PRESSURE DECREASED [None]
  - UNRESPONSIVE TO STIMULI [None]
